FAERS Safety Report 14987840 (Version 2)
Quarter: 2018Q3

REPORT INFORMATION
  Report Type: Spontaneous
  Country: GB (occurrence: GB)
  Receive Date: 20180608
  Receipt Date: 20180904
  Transmission Date: 20181010
  Serious: Yes (Hospitalization, Other)
  Sender: FDA-Public Use
  Company Number: GB-AUROBINDO-AUR-APL-2018-029580

PATIENT
  Age: 46 Year
  Sex: Female
  Weight: 97 kg

DRUGS (3)
  1. CITALOPRAM [Concomitant]
     Active Substance: CITALOPRAM HYDROBROMIDE
     Indication: ANXIETY
     Dosage: UNK
     Route: 065
  2. CITALOPRAM [Concomitant]
     Active Substance: CITALOPRAM HYDROBROMIDE
     Dosage: 10MG OD. INCR TO 20MG OD. INCR TO 30MG OD, REDU TO 20MG OD. INCR TO 30MG AND INCR TO 40MG OD.
     Route: 065
     Dates: start: 20060323, end: 20070307
  3. SUMATRIPTAN. [Suspect]
     Active Substance: SUMATRIPTAN
     Indication: MIGRAINE WITH AURA
     Dosage: 50 MILLIGRAM, TOOK 3 DOSES ; AS NECESSARY
     Route: 048
     Dates: start: 20180328, end: 20180330

REACTIONS (10)
  - Subclavian artery thrombosis [Recovered/Resolved]
  - Blindness transient [Unknown]
  - Peripheral swelling [Unknown]
  - Visual impairment [Unknown]
  - Skin discolouration [Unknown]
  - Peripheral coldness [Unknown]
  - Pulse abnormal [Unknown]
  - Photopsia [Unknown]
  - Nausea [Unknown]
  - Paraesthesia [Unknown]

NARRATIVE: CASE EVENT DATE: 20180326
